FAERS Safety Report 16193613 (Version 1)
Quarter: 2019Q2

REPORT INFORMATION
  Report Type: Spontaneous
  Country: US (occurrence: US)
  Receive Date: 20190413
  Receipt Date: 20190413
  Transmission Date: 20190711
  Serious: No
  Sender: FDA-Public Use
  Company Number: US-SCIEGEN PHARMACEUTICALS INC-2019SCISPO00129

PATIENT

DRUGS (1)
  1. FLUOXETINE CAPSULES, USP [Suspect]
     Active Substance: FLUOXETINE HYDROCHLORIDE
     Indication: PRODUCT USED FOR UNKNOWN INDICATION
     Dosage: UNK, ABOUT 5 DAYS
     Route: 065

REACTIONS (2)
  - Rash [Recovered/Resolved]
  - Product substitution issue [Unknown]
